FAERS Safety Report 7419215-3 (Version None)
Quarter: 2011Q2

REPORT INFORMATION
  Report Type: 
  Country: None (occurrence: None)
  Receive Date: 20110415
  Receipt Date: 20110407
  Transmission Date: 20111010
  Serious: Yes (Hospitalization)
  Sender: FDA-Public Use
  Company Number: CA-AMGEN-CANSP2011018635

PATIENT
  Age: 33 Year
  Sex: Male

DRUGS (3)
  1. ENBREL [Suspect]
     Dosage: UNK UNK, 2 TIMES/WK
     Dates: start: 20080501, end: 20080801
  2. ENBREL [Suspect]
     Indication: PSORIASIS
     Dosage: 50 MG, 2 TIMES/WK
     Route: 058
     Dates: start: 20100525
  3. ENBREL [Suspect]
     Dosage: UNK, QWK
     Dates: start: 20080901, end: 20091201

REACTIONS (1)
  - SARCOIDOSIS [None]
